FAERS Safety Report 8215946-6 (Version None)
Quarter: 2012Q1

REPORT INFORMATION
  Report Type: 
  Country: None (occurrence: None)
  Receive Date: 20120316
  Receipt Date: 20120308
  Transmission Date: 20120608
  Serious: Yes (Hospitalization)
  Sender: FDA-Public Use
  Company Number: JP-ASTRAZENECA-2012SE17021

PATIENT
  Age: 27412 Day
  Sex: Female

DRUGS (19)
  1. MIGLITOL [Concomitant]
     Indication: TYPE 2 DIABETES MELLITUS
     Route: 048
  2. TALION OD [Concomitant]
     Indication: RHINITIS ALLERGIC
     Route: 048
  3. MUCOSTA [Concomitant]
     Indication: GASTRITIS
     Route: 048
  4. MECOBALAMIN [Concomitant]
     Indication: CARPAL TUNNEL SYNDROME
     Route: 048
  5. KETOPROFEN [Concomitant]
     Indication: OSTEOARTHRITIS
     Route: 062
  6. TOWARAT-CR [Concomitant]
     Indication: HYPERTENSION
     Route: 048
  7. FERROUS CITRATE [Concomitant]
     Indication: ANAEMIA
     Route: 048
  8. ASPIRIN [Suspect]
     Route: 048
  9. NATEGLINIDE [Concomitant]
     Indication: TYPE 2 DIABETES MELLITUS
     Route: 048
  10. INTAL [Concomitant]
     Indication: CONJUNCTIVITIS ALLERGIC
     Route: 047
  11. PLAVIX [Suspect]
     Indication: CORONARY ARTERY DISEASE
     Route: 048
     Dates: start: 20111121
  12. KETOPROFEN [Concomitant]
     Indication: BACK PAIN
     Route: 062
  13. ALENDRONATE SODIUM [Concomitant]
     Indication: OSTEOPOROSIS
     Route: 048
  14. ATOLANT [Concomitant]
     Indication: TINEA INFECTION
     Route: 062
  15. LULICON [Concomitant]
     Indication: TINEA INFECTION
     Route: 062
  16. REBAMIPIDE [Concomitant]
     Indication: GASTRITIS PROPHYLAXIS
     Route: 048
  17. VITADAN [Concomitant]
     Indication: BACK PAIN
     Route: 048
  18. SHAKUYAKU KANZOUTOU [Concomitant]
     Indication: BACK PAIN
     Route: 048
  19. OLMESARTAN MEDOXOMIL [Concomitant]
     Indication: HYPERLIPIDAEMIA
     Route: 048

REACTIONS (1)
  - OESOPHAGEAL ULCER [None]
